FAERS Safety Report 6986141-3 (Version None)
Quarter: 2010Q3

REPORT INFORMATION
  Report Type: 
  Country: None (occurrence: None)
  Receive Date: 20100915
  Receipt Date: 20090707
  Transmission Date: 20110219
  Serious: No
  Sender: FDA-Public Use
  Company Number: US-WYE-H09655609

PATIENT
  Sex: Male

DRUGS (3)
  1. PRISTIQ [Suspect]
     Indication: DEPRESSION
     Route: 048
     Dates: start: 20080611, end: 20090603
  2. DILANTIN [Concomitant]
  3. NEXIUM [Concomitant]

REACTIONS (1)
  - DRUG SCREEN FALSE POSITIVE [None]
